FAERS Safety Report 13345749 (Version 11)
Quarter: 2017Q3

REPORT INFORMATION
  Report Type: Report from Study
  Country: US (occurrence: US)
  Receive Date: 20170317
  Receipt Date: 20170824
  Transmission Date: 20171127
  Serious: Yes (Other)
  Sender: FDA-Public Use
  Company Number: US-PFIZER INC-2017072910

PATIENT
  Age: 60 Year
  Sex: Female

DRUGS (4)
  1. IBRANCE [Suspect]
     Active Substance: PALBOCICLIB
     Indication: BREAST CANCER METASTATIC
     Dosage: 125 MG, CYCLIC (DAILY 3 WEEKS ON/1 WEEK OFF)
     Route: 048
     Dates: start: 20170209, end: 20170301
  2. FASLODEX [Concomitant]
     Active Substance: FULVESTRANT
     Dosage: UNK
  3. IBRANCE [Suspect]
     Active Substance: PALBOCICLIB
     Dosage: 100 MG, CYCLIC (DAILY 3 WEEKS ON/ 1 WEEK OFF)
     Route: 048
  4. IBRANCE [Suspect]
     Active Substance: PALBOCICLIB
     Dosage: 100 MG, CYCLIC (DAILY 3 WEEKS ON/ 1 WEEK OFF)
     Route: 048
     Dates: start: 20170322, end: 20170816

REACTIONS (19)
  - Frequent bowel movements [Unknown]
  - Bone marrow failure [Recovered/Resolved]
  - Lymph node pain [Unknown]
  - Nasopharyngitis [Unknown]
  - Gait disturbance [Not Recovered/Not Resolved]
  - Dry skin [Unknown]
  - Tooth disorder [Unknown]
  - Rib fracture [Unknown]
  - Headache [Unknown]
  - Neuropathy peripheral [Not Recovered/Not Resolved]
  - Diarrhoea [Unknown]
  - Neoplasm progression [Unknown]
  - Vision blurred [Unknown]
  - Nausea [Recovered/Resolved]
  - Fatigue [Recovering/Resolving]
  - Paraesthesia [Unknown]
  - Decreased appetite [Unknown]
  - Alopecia [Unknown]
  - Nerve compression [Unknown]

NARRATIVE: CASE EVENT DATE: 2017
